FAERS Safety Report 13940947 (Version 3)
Quarter: 2018Q1

REPORT INFORMATION
  Report Type: Spontaneous
  Country: BE (occurrence: BE)
  Receive Date: 20170906
  Receipt Date: 20180227
  Transmission Date: 20180508
  Serious: Yes (Hospitalization, Other)
  Sender: FDA-Public Use
  Company Number: BE-ASTRAZENECA-2017SE90490

PATIENT
  Age: 924 Month
  Sex: Female
  Weight: 53.3 kg

DRUGS (2)
  1. CRESTOR [Suspect]
     Active Substance: ROSUVASTATIN CALCIUM
     Indication: HYPERLIPIDAEMIA
     Route: 048
     Dates: start: 20110614
  2. AMLOR [Concomitant]
     Active Substance: AMLODIPINE BESYLATE
     Indication: HYPERTENSION
     Route: 048
     Dates: start: 20170710

REACTIONS (23)
  - Malignant neoplasm progression [Unknown]
  - Metabolic acidosis [Unknown]
  - Weight decreased [Unknown]
  - Erysipelas [Unknown]
  - Type 2 diabetes mellitus [Unknown]
  - Liver function test abnormal [Unknown]
  - Metastases to peritoneum [Unknown]
  - Ascites [Unknown]
  - Thrombosis mesenteric vessel [Unknown]
  - Staphylococcal sepsis [Unknown]
  - General physical health deterioration [Unknown]
  - Decreased appetite [Unknown]
  - Decreased appetite [Unknown]
  - Cholestasis [Unknown]
  - Dehydration [Unknown]
  - Catheter site cellulitis [Unknown]
  - Asthenia [Unknown]
  - Ductal adenocarcinoma of pancreas [Unknown]
  - Benign pancreatic neoplasm [Unknown]
  - Abdominal discomfort [Unknown]
  - Acute kidney injury [Unknown]
  - Bile duct obstruction [Unknown]
  - Hepatic lesion [Unknown]

NARRATIVE: CASE EVENT DATE: 201706
